FAERS Safety Report 12910773 (Version 1)
Quarter: 2016Q4

REPORT INFORMATION
  Report Type: Spontaneous
  Country: US (occurrence: US)
  Receive Date: 20161104
  Receipt Date: 20161104
  Transmission Date: 20170207
  Serious: Yes (Other)
  Sender: FDA-Public Use
  Company Number: None

PATIENT
  Age: 34 Year
  Sex: Female
  Weight: 108.96 kg

DRUGS (10)
  1. ALLEGRA [Concomitant]
     Active Substance: FEXOFENADINE HYDROCHLORIDE
  2. EPIPEN [Concomitant]
     Active Substance: EPINEPHRINE
  3. XANAX [Concomitant]
     Active Substance: ALPRAZOLAM
  4. PROAIR INHALER [Concomitant]
  5. CHLORTHALIDONE. [Concomitant]
     Active Substance: CHLORTHALIDONE
  6. PARAGARD T 380A [Suspect]
     Active Substance: COPPER
     Dates: start: 20061001, end: 20160811
  7. COLACE [Concomitant]
     Active Substance: DOCUSATE SODIUM
  8. HYDROXYZINE PAMOATE. [Concomitant]
     Active Substance: HYDROXYZINE PAMOATE
  9. LAMOTRIGINE. [Concomitant]
     Active Substance: LAMOTRIGINE
  10. ANAPHYLAXIS [Concomitant]

REACTIONS (2)
  - Device breakage [None]
  - Device dislocation [None]

NARRATIVE: CASE EVENT DATE: 20160714
